FAERS Safety Report 24642195 (Version 1)
Quarter: 2024Q4

REPORT INFORMATION
  Report Type: Spontaneous
  Country: US (occurrence: None)
  Receive Date: 20241119
  Receipt Date: 20241119
  Transmission Date: 20250114
  Serious: Yes (Other)
  Sender: Public
  Company Number: None

PATIENT
  Age: 47 Year
  Sex: Female

DRUGS (1)
  1. FERUMOXYTOL [Suspect]
     Active Substance: FERUMOXYTOL
     Indication: Anaemia
     Route: 042

REACTIONS (9)
  - Abdominal pain upper [None]
  - Nausea [None]
  - Dyspnoea [None]
  - Urticaria [None]
  - Somnolence [None]
  - Blood pressure increased [None]
  - Heart rate increased [None]
  - Tearfulness [None]
  - Infusion related reaction [None]

NARRATIVE: CASE EVENT DATE: 20241101
